FAERS Safety Report 9256340 (Version 1)
Quarter: 2013Q2

REPORT INFORMATION
  Report Type: Spontaneous
  Country: SG (occurrence: SG)
  Receive Date: 20130425
  Receipt Date: 20130425
  Transmission Date: 20140414
  Serious: Yes (Other)
  Sender: FDA-Public Use
  Company Number: SG-MYLANLABS-2013S1008271

PATIENT
  Age: 58 Year
  Sex: Male

DRUGS (4)
  1. PREDNISOLONE [Suspect]
     Indication: PEMPHIGUS
     Dosage: TAPERING DOSE OF 10 MG/DAY
     Route: 065
  2. PREDNISOLONE [Suspect]
     Indication: PEMPHIGUS
     Dosage: UP TO 1.0 MG/KG/DAY
     Route: 065
  3. AZATHIOPRINE [Suspect]
     Indication: PEMPHIGUS
     Dosage: 100 MG/DAY
     Route: 065
  4. AZATHIOPRINE [Suspect]
     Indication: PEMPHIGUS
     Dosage: UP TO 150 MG/DAY
     Route: 065

REACTIONS (5)
  - Molluscum contagiosum [Recovered/Resolved]
  - Leukopenia [Unknown]
  - Iridocyclitis [Unknown]
  - Viral uveitis [Unknown]
  - Cytomegalovirus infection [Unknown]
